FAERS Safety Report 7449064-1 (Version None)
Quarter: 2011Q2

REPORT INFORMATION
  Report Type: 
  Country: None (occurrence: None)
  Receive Date: 20110501
  Receipt Date: 20110421
  Transmission Date: 20111010
  Serious: Yes (Hospitalization)
  Sender: FDA-Public Use
  Company Number: FR-BRISTOL-MYERS SQUIBB COMPANY-15692197

PATIENT
  Age: 81 Year
  Sex: Female

DRUGS (8)
  1. SOLUPRED [Suspect]
     Indication: ASTHMA
     Route: 048
  2. DILTIAZEM HCL [Suspect]
     Route: 048
  3. PREVISCAN [Suspect]
     Route: 048
  4. LASILIX [Suspect]
     Route: 048
  5. ELISOR TABS 20 MG [Suspect]
     Indication: HYPERCHOLESTEROLAEMIA
     Route: 048
  6. TRIATEC [Suspect]
     Route: 048
  7. PULMICORT [Suspect]
     Route: 055
  8. VENTOLIN [Suspect]
     Route: 055

REACTIONS (2)
  - PANCREATITIS [None]
  - ACUTE RESPIRATORY DISTRESS SYNDROME [None]
